FAERS Safety Report 24575131 (Version 9)
Quarter: 2025Q4

REPORT INFORMATION
  Report Type: Report from Study
  Country: US (occurrence: US)
  Receive Date: 20241104
  Receipt Date: 20251211
  Transmission Date: 20260118
  Serious: Yes (Other)
  Sender: TRAVERE THERAPEUTICS
  Company Number: US-TRAVERE-2024TVT01017

PATIENT
  Age: 58 Year
  Sex: Male
  Weight: 110 kg

DRUGS (26)
  1. FILSPARI [Suspect]
     Active Substance: SPARSENTAN
     Indication: IgA nephropathy
     Route: 048
     Dates: start: 20240922
  2. FILSPARI [Suspect]
     Active Substance: SPARSENTAN
     Dosage: MAINTENANCE DOSE OF 400 MG: OCT-2024?EXPIRY DATE: 31-AUG-2025
     Route: 048
  3. CORTISONE [Suspect]
     Active Substance: CORTISONE
     Indication: Arthritis
     Dosage: RIGHT SHOULDER
  4. ATORVASTATIN [Concomitant]
     Active Substance: ATORVASTATIN
  5. SUMATRIPTAN [Concomitant]
     Active Substance: SUMATRIPTAN
  6. VITAMIN D3 [Concomitant]
     Active Substance: CHOLECALCIFEROL
  7. EMPAGLIFLOZIN [Concomitant]
     Active Substance: EMPAGLIFLOZIN
  8. ASPIRIN [Concomitant]
     Active Substance: ASPIRIN
  9. Cholecalcif [Concomitant]
  10. FLUTICASONE [Concomitant]
     Active Substance: FLUTICASONE
  11. Hydrophilic [Concomitant]
  12. LIDOCAINE [Concomitant]
     Active Substance: LIDOCAINE
  13. POLYETHYLENE GLYCOL [Concomitant]
     Active Substance: POLYETHYLENE GLYCOL
  14. SEMAGLUTIDE [Concomitant]
     Active Substance: SEMAGLUTIDE
  15. SENNOSIDES [Concomitant]
     Active Substance: SENNOSIDES
  16. SUMATRIPTAN SUCCINATE [Concomitant]
     Active Substance: SUMATRIPTAN SUCCINATE
  17. TADALAFIL [Concomitant]
     Active Substance: TADALAFIL
  18. TELMISARTAN [Concomitant]
     Active Substance: TELMISARTAN
  19. RIBOFLAVIN [Concomitant]
     Active Substance: RIBOFLAVIN
  20. PYRIDOXINE HYDROCHLORIDE [Concomitant]
     Active Substance: PYRIDOXINE HYDROCHLORIDE
  21. NAPROXEN [Concomitant]
     Active Substance: NAPROXEN
  22. DICLOFENAC [Concomitant]
     Active Substance: DICLOFENAC
  23. CAPSAICIN [Concomitant]
     Active Substance: CAPSAICIN
  24. CAMPHOR [Concomitant]
     Active Substance: CAMPHOR
  25. ANAKINRA [Concomitant]
     Active Substance: ANAKINRA
  26. ALLOPURINOL [Concomitant]
     Active Substance: ALLOPURINOL

REACTIONS (16)
  - Central serous chorioretinopathy [Unknown]
  - Renal pain [Recovered/Resolved]
  - Blood glucose increased [Unknown]
  - Blood chloride increased [Unknown]
  - Carbon dioxide decreased [Unknown]
  - Blood urea increased [Unknown]
  - Blood creatinine increased [Unknown]
  - Blood calcium decreased [Unknown]
  - Rash pruritic [None]
  - Cataract [Unknown]
  - Dry skin [Unknown]
  - Irritability [None]
  - Fatigue [None]
  - Chromaturia [Unknown]
  - Rash [Unknown]
  - Contraindicated product administered [Unknown]

NARRATIVE: CASE EVENT DATE: 20241201
